FAERS Safety Report 6085014-0 (Version None)
Quarter: 2009Q1

REPORT INFORMATION
  Report Type: 
  Country: None (occurrence: None)
  Receive Date: 20090220
  Receipt Date: 20090210
  Transmission Date: 20090719
  Serious: Yes (Hospitalization)
  Sender: FDA-Public Use
  Company Number: US-AMGEN-QUU333299

PATIENT
  Sex: Female

DRUGS (2)
  1. ENBREL [Suspect]
     Indication: RHEUMATOID ARTHRITIS
     Route: 058
     Dates: start: 20001101
  2. LEFLUNOMIDE [Concomitant]
     Route: 048

REACTIONS (4)
  - ASTHMA [None]
  - CYSTITIS INTERSTITIAL [None]
  - NEPHROLITHIASIS [None]
  - URINARY TRACT INFECTION [None]
